FAERS Safety Report 20289264 (Version 1)
Quarter: 2022Q1

REPORT INFORMATION
  Report Type: Spontaneous
  Country: CO (occurrence: CO)
  Receive Date: 20220104
  Receipt Date: 20220104
  Transmission Date: 20220424
  Serious: Yes (Other)
  Sender: FDA-Public Use
  Company Number: CO-LUPIN PHARMACEUTICALS INC.-2021-26199

PATIENT
  Age: 37 Year
  Sex: Female

DRUGS (4)
  1. BETAMETHASONE [Suspect]
     Active Substance: BETAMETHASONE
     Indication: Product used for unknown indication
     Dosage: 12 MILLIGRAM; (REPORTED AS, TWO DOSES INCLUDING A RESCUE DOSE; ADMINISTERED IN THE EIGHTH MONTH OF P
     Route: 030
  2. VITAMINS [Suspect]
     Active Substance: VITAMINS
     Indication: Vitamin supplementation
     Dosage: 1 DOSAGE FORM, QD (INITIATED IN FIRST MONTH OF PREGNANCY)
     Route: 048
  3. ASPIRIN [Suspect]
     Active Substance: ASPIRIN
     Indication: Product used for unknown indication
     Dosage: 100 MILLIGRAM, QD (INITIATED IN THE THIRD MONTH OF PREGNANCY)
     Route: 048
  4. ENOXAPARIN [Suspect]
     Active Substance: ENOXAPARIN
     Indication: Product used for unknown indication
     Dosage: 40 MILLIGRAM, QD (INITIATED IN THE SIXTH MONTH OF PREGNANCY)
     Route: 058

REACTIONS (7)
  - Maternal exposure during pregnancy [Unknown]
  - Premature delivery [Unknown]
  - Uterine contractions abnormal [Unknown]
  - Vaginal haemorrhage [Unknown]
  - Amniorrhoea [Unknown]
  - Placenta accreta [Unknown]
  - Oligohydramnios [Unknown]
